FAERS Safety Report 4338336-5 (Version None)
Quarter: 2004Q2

REPORT INFORMATION
  Report Type: 
  Country: None (occurrence: None)
  Receive Date: 20040407
  Receipt Date: 20040329
  Transmission Date: 20050107
  Serious: Yes (Hospitalization, Other)
  Sender: FDA-Public Use
  Company Number: 2003-06-0911

PATIENT
  Sex: Male

DRUGS (10)
  1. INTRON A [Suspect]
     Indication: METASTATIC RENAL CELL CARCINOMA
     Dosage: SEE IMAGE
     Route: 058
     Dates: start: 20030127, end: 20030127
  2. INTRON A [Suspect]
     Indication: METASTATIC RENAL CELL CARCINOMA
     Dosage: SEE IMAGE
     Route: 058
     Dates: start: 20030129, end: 20030129
  3. INTRON A [Suspect]
     Indication: METASTATIC RENAL CELL CARCINOMA
     Dosage: SEE IMAGE
     Route: 058
     Dates: start: 20030131, end: 20030131
  4. INTRON A [Suspect]
     Indication: METASTATIC RENAL CELL CARCINOMA
     Dosage: SEE IMAGE
     Route: 058
     Dates: start: 20030203, end: 20030427
  5. INTRON A [Suspect]
     Indication: METASTATIC RENAL CELL CARCINOMA
     Dosage: SEE IMAGE
     Route: 058
     Dates: start: 20030430, end: 20030430
  6. INTRON A [Suspect]
     Indication: METASTATIC RENAL CELL CARCINOMA
     Dosage: SEE IMAGE
     Route: 058
     Dates: start: 20030502, end: 20030502
  7. INTRON A [Suspect]
     Indication: METASTATIC RENAL CELL CARCINOMA
     Dosage: SEE IMAGE
     Route: 058
     Dates: start: 20030127, end: 20030505
  8. INTRON A [Suspect]
     Indication: METASTATIC RENAL CELL CARCINOMA
     Dosage: SEE IMAGE
     Route: 058
     Dates: start: 20030505, end: 20030505
  9. CHLORPHENIRAMINE MALEATE [Concomitant]
  10. TRIMETHOPRIM [Concomitant]

REACTIONS (13)
  - CONFUSIONAL STATE [None]
  - DEHYDRATION [None]
  - DIFFICULTY IN WALKING [None]
  - FALL [None]
  - FATIGUE [None]
  - FEELING ABNORMAL [None]
  - GAMMA-GLUTAMYLTRANSFERASE INCREASED [None]
  - HYPERCALCAEMIA [None]
  - HYPERKALAEMIA [None]
  - NERVOUS SYSTEM DISORDER [None]
  - PRURITUS [None]
  - TREMOR [None]
  - WEIGHT DECREASED [None]
